FAERS Safety Report 11158857 (Version 1)
Quarter: 2015Q2

REPORT INFORMATION
  Report Type: Spontaneous
  Country: US (occurrence: None)
  Receive Date: 20150602
  Receipt Date: 20150602
  Transmission Date: 20150821
  Serious: Yes (Other)
  Sender: FDA-Public Use
  Company Number: None

PATIENT
  Age: 79 Year
  Sex: Male
  Weight: 61.24 kg

DRUGS (1)
  1. MORPHINE [Suspect]
     Active Substance: MORPHINE
     Indication: FLANK PAIN
     Dosage: DATE OF USE: ONCE
     Route: 042

REACTIONS (3)
  - Injection site swelling [None]
  - Injection site urticaria [None]
  - Injection site erythema [None]

NARRATIVE: CASE EVENT DATE: 20150523
